FAERS Safety Report 9415137 (Version 2)
Quarter: 2013Q3

REPORT INFORMATION
  Report Type: Report from Study
  Country: CA (occurrence: CA)
  Receive Date: 20130723
  Receipt Date: 20130820
  Transmission Date: 20140515
  Serious: Yes (Other)
  Sender: FDA-Public Use
  Company Number: CA-ROCHE-1229039

PATIENT
  Age: 46 Year
  Sex: Female
  Weight: 75 kg

DRUGS (12)
  1. ACTEMRA [Suspect]
     Indication: POLYCHONDRITIS
     Route: 042
     Dates: start: 20130523
  2. ACTEMRA [Suspect]
     Indication: OFF LABEL USE
  3. RISEDRONATE SODIUM [Concomitant]
  4. SULFATRIM DS [Concomitant]
  5. PHENAZONE [Concomitant]
  6. PREDNISONE [Concomitant]
  7. LYRICA [Concomitant]
  8. PROCYTOX [Concomitant]
  9. APO-AMITRIPTYLINE [Concomitant]
  10. PANTOPRAZOLE [Concomitant]
  11. FUCIDIN [Concomitant]
  12. BENADRYL (CANADA) [Concomitant]
     Indication: PREMEDICATION
     Route: 048
     Dates: start: 20130620

REACTIONS (5)
  - Uveitis [Not Recovered/Not Resolved]
  - Scleritis [Not Recovered/Not Resolved]
  - Paraesthesia oral [Recovered/Resolved]
  - Lip swelling [Recovered/Resolved]
  - Acne [Recovered/Resolved]
